FAERS Safety Report 17702055 (Version 3)
Quarter: 2020Q2

REPORT INFORMATION
  Report Type: Report from Study
  Country: None (occurrence: US)
  Receive Date: 20200424
  Receipt Date: 20200430
  Transmission Date: 20200714
  Serious: Yes (Death)
  Sender: FDA-Public Use
  Company Number: US-ABBVIE-20K-163-3375751-00

PATIENT
  Age: 78 Year
  Sex: Female
  Weight: 43.13 kg

DRUGS (15)
  1. HAIR, SKIN + NAILS [Concomitant]
     Active Substance: MINERALS\VITAMINS
     Indication: PRODUCT USED FOR UNKNOWN INDICATION
     Route: 048
  2. SINEMET [Concomitant]
     Active Substance: CARBIDOPA\LEVODOPA
     Indication: PRODUCT USED FOR UNKNOWN INDICATION
     Route: 048
  3. RESTASIS [Concomitant]
     Active Substance: CYCLOSPORINE
     Indication: PRODUCT USED FOR UNKNOWN INDICATION
     Dosage: AS DIRECTED??BOTH EYES
     Route: 047
  4. AMANTADINE. [Concomitant]
     Active Substance: AMANTADINE HYDROCHLORIDE
     Indication: PRODUCT USED FOR UNKNOWN INDICATION
     Route: 048
  5. CELEBREX [Concomitant]
     Active Substance: CELECOXIB
     Indication: PRODUCT USED FOR UNKNOWN INDICATION
     Route: 048
  6. TRAZODONE [Concomitant]
     Active Substance: TRAZODONE HYDROCHLORIDE
     Indication: PRODUCT USED FOR UNKNOWN INDICATION
     Route: 048
  7. DUOPA [Suspect]
     Active Substance: CARBIDOPA\LEVODOPA
     Indication: PRODUCT USED FOR UNKNOWN INDICATION
     Dosage: 4.63 MG/ML 20 MG/ML
     Route: 050
     Dates: start: 20180808, end: 20200411
  8. CALCIUM +D [Concomitant]
     Active Substance: CALCIUM\VITAMIN D
     Indication: PRODUCT USED FOR UNKNOWN INDICATION
     Route: 048
  9. NAMENDA [Concomitant]
     Active Substance: MEMANTINE HYDROCHLORIDE
     Indication: PRODUCT USED FOR UNKNOWN INDICATION
     Route: 048
  10. ALEVE [Concomitant]
     Active Substance: NAPROXEN SODIUM
     Indication: PRODUCT USED FOR UNKNOWN INDICATION
     Dosage: 1-2 TIMES WEEKLY
     Route: 048
  11. PROZAC [Concomitant]
     Active Substance: FLUOXETINE HYDROCHLORIDE
     Indication: PRODUCT USED FOR UNKNOWN INDICATION
     Route: 048
  12. DUOPA [Suspect]
     Active Substance: CARBIDOPA\LEVODOPA
     Route: 050
  13. MULTIVITAMINS [Concomitant]
     Active Substance: VITAMINS
     Indication: PRODUCT USED FOR UNKNOWN INDICATION
     Route: 048
  14. KLONOPIN [Concomitant]
     Active Substance: CLONAZEPAM
     Indication: PRODUCT USED FOR UNKNOWN INDICATION
     Route: 048
  15. PROTONIX [Concomitant]
     Active Substance: PANTOPRAZOLE SODIUM
     Indication: PRODUCT USED FOR UNKNOWN INDICATION
     Route: 048

REACTIONS (26)
  - Gastrointestinal inflammation [Fatal]
  - Hypotension [Fatal]
  - Haemoptysis [Fatal]
  - Haematemesis [Unknown]
  - Gastrointestinal haemorrhage [Fatal]
  - Intestinal ischaemia [Fatal]
  - Gastrointestinal infection [Fatal]
  - White blood cell count increased [Fatal]
  - Volvulus of small bowel [Fatal]
  - Device issue [Not Recovered/Not Resolved]
  - Shock haemorrhagic [Fatal]
  - Hypoxia [Fatal]
  - Septic shock [Fatal]
  - Unresponsive to stimuli [Fatal]
  - Blood urea increased [Fatal]
  - Blood creatinine increased [Fatal]
  - Intestinal obstruction [Fatal]
  - Cardiac arrest [Fatal]
  - Haemoglobin decreased [Fatal]
  - Volvulus [Fatal]
  - Organ failure [Fatal]
  - Blood lactic acid increased [Fatal]
  - Intra-abdominal fluid collection [Fatal]
  - Intussusception [Fatal]
  - Gastrointestinal wall thickening [Unknown]
  - Skin discolouration [Fatal]

NARRATIVE: CASE EVENT DATE: 20200411
